FAERS Safety Report 22127675 (Version 1)
Quarter: 2023Q1

REPORT INFORMATION
  Report Type: Spontaneous
  Country: US (occurrence: US)
  Receive Date: 20230323
  Receipt Date: 20230323
  Transmission Date: 20230418
  Serious: No
  Sender: FDA-Public Use
  Company Number: US-ALLERGAN-2300724US

PATIENT
  Age: 89 Year
  Sex: Male

DRUGS (3)
  1. DALVANCE [Suspect]
     Active Substance: DALBAVANCIN
     Indication: Cellulitis
     Dosage: 1465 MG, SINGLE
     Route: 042
     Dates: start: 20221222, end: 20221222
  2. DALVANCE [Suspect]
     Active Substance: DALBAVANCIN
     Indication: Arthritis infective
  3. blood pressure meds [Concomitant]
     Indication: Blood pressure abnormal

REACTIONS (1)
  - Syncope [Recovered/Resolved]

NARRATIVE: CASE EVENT DATE: 20221222
